FAERS Safety Report 10069016 (Version 2)
Quarter: 2014Q3

REPORT INFORMATION
  Report Type: Spontaneous
  Country: GB (occurrence: GB)
  Receive Date: 20140409
  Receipt Date: 20140812
  Transmission Date: 20150326
  Serious: Yes (Other)
  Sender: FDA-Public Use
  Company Number: PHHY2014GB043002

PATIENT
  Sex: Male
  Weight: 2.41 kg

DRUGS (2)
  1. VALPROIC ACID. [Suspect]
     Active Substance: VALPROIC ACID
     Route: 064
  2. CARBAMAZEPINE. [Suspect]
     Active Substance: CARBAMAZEPINE
     Route: 064

REACTIONS (19)
  - Brachycephaly [Unknown]
  - Head circumference abnormal [Unknown]
  - Failure to thrive [Unknown]
  - Congenital optic nerve anomaly [Unknown]
  - Foetal exposure during pregnancy [Unknown]
  - Hypertelorism of orbit [Unknown]
  - Retinal coloboma [Unknown]
  - Low birth weight baby [Unknown]
  - Hypospadias [Unknown]
  - Foetal anticonvulsant syndrome [Unknown]
  - Foot deformity [Unknown]
  - Hearing impaired [Unknown]
  - Atrial septal defect [Unknown]
  - Dysmorphism [Unknown]
  - Visual acuity reduced [Unknown]
  - Motor developmental delay [Unknown]
  - Dacryostenosis congenital [Unknown]
  - Cleft palate [Unknown]
  - Coloboma [Unknown]
